FAERS Safety Report 4934931-0 (Version None)
Quarter: 2006Q1

REPORT INFORMATION
  Report Type: 
  Country: None (occurrence: None)
  Receive Date: 20060306
  Receipt Date: 20060306
  Transmission Date: 20060701
  Serious: Yes (Other)
  Sender: FDA-Public Use
  Company Number: None

PATIENT
  Age: 32 Year
  Sex: Female
  Weight: 52.1637 kg

DRUGS (2)
  1. FLUOXETINE [Suspect]
     Indication: HYPERSOMNIA
     Dosage: 20 MG QD PO
     Route: 048
     Dates: start: 20050901, end: 20051129
  2. ZOLOFT [Suspect]
     Indication: HYPERSOMNIA
     Dosage: 50 MG QD PO
     Route: 048
     Dates: start: 20051130, end: 20051231

REACTIONS (2)
  - PARAESTHESIA [None]
  - SOMNOLENCE [None]
